FAERS Safety Report 12949987 (Version 1)
Quarter: 2016Q4

REPORT INFORMATION
  Report Type: Spontaneous
  Country: US (occurrence: US)
  Receive Date: 20161116
  Receipt Date: 20161116
  Transmission Date: 20170207
  Serious: No
  Sender: FDA-Public Use
  Company Number: None

PATIENT
  Age: 64 Year
  Sex: Male

DRUGS (1)
  1. ZEPATIER [Suspect]
     Active Substance: ELBASVIR\GRAZOPREVIR
     Indication: CIRRHOSIS ALCOHOLIC

REACTIONS (3)
  - Fatigue [None]
  - Asthenia [None]
  - Amnesia [None]

NARRATIVE: CASE EVENT DATE: 20161116
